FAERS Safety Report 6980119-1 (Version None)
Quarter: 2010Q3

REPORT INFORMATION
  Report Type: 
  Country: None (occurrence: None)
  Receive Date: 20100909
  Receipt Date: 20100901
  Transmission Date: 20110219
  Serious: Yes (Hospitalization)
  Sender: FDA-Public Use
  Company Number: 018070

PATIENT
  Sex: Female
  Weight: 96 kg

DRUGS (6)
  1. CERTOLIZUMAB PEGOL (CERTOLIZUMAB PEGOL) [Suspect]
     Indication: RHEUMATOID ARTHRITIS
     Dosage: 200 MG 1X/2 WEEKS SUBCUTANEOUS
     Route: 058
     Dates: start: 20100201, end: 20100409
  2. PREDNISOLONE [Concomitant]
  3. ARAVA [Concomitant]
  4. CALCILAC /00944201/ [Concomitant]
  5. METHOTREXATE [Concomitant]
  6. EVISTA /01303202/ [Concomitant]

REACTIONS (3)
  - PSEUDOMONAS INFECTION [None]
  - SKIN ULCER [None]
  - STAPHYLOCOCCAL INFECTION [None]
